FAERS Safety Report 5380994-0 (Version None)
Quarter: 2007Q3

REPORT INFORMATION
  Report Type: 
  Country: None (occurrence: None)
  Receive Date: 20070702
  Receipt Date: 20060518
  Transmission Date: 20080115
  Serious: Yes (Other)
  Sender: FDA-Public Use
  Company Number: PROG00206001654

PATIENT
  Sex: Female
  Weight: 51 kg

DRUGS (9)
  1. PROMETRIUM [Suspect]
     Indication: LUTEAL PHASE DEFICIENCY
     Dosage: SEE IMAGE
     Route: 048
     Dates: start: 20060419, end: 20060424
  2. PROMETRIUM [Suspect]
     Indication: PROGESTERONE DECREASED
     Dosage: SEE IMAGE
     Route: 048
     Dates: start: 20060419, end: 20060424
  3. PROMETRIUM [Suspect]
     Indication: LUTEAL PHASE DEFICIENCY
     Dosage: SEE IMAGE
     Route: 048
     Dates: start: 20060425, end: 20060503
  4. PROMETRIUM [Suspect]
     Indication: PROGESTERONE DECREASED
     Dosage: SEE IMAGE
     Route: 048
     Dates: start: 20060425, end: 20060503
  5. PRENATAL VITAMINS (PRENATAL VITAMINS) [Concomitant]
  6. LORTAB [Concomitant]
  7. CO-GESIC (ACETAMINOPHEN; HYDROCODONE BITARTRATE) [Concomitant]
  8. VICOPROFEN [Concomitant]
  9. DIAZEPANM (DIAZEPAM) [Concomitant]

REACTIONS (6)
  - ABORTION SPONTANEOUS [None]
  - ANXIETY [None]
  - DECREASED APPETITE [None]
  - DYSPNOEA [None]
  - INSOMNIA [None]
  - SOMNOLENCE [None]
